FAERS Safety Report 5364486-0 (Version None)
Quarter: 2007Q2

REPORT INFORMATION
  Report Type: 
  Country: None (occurrence: None)
  Receive Date: 20070530
  Receipt Date: 20070116
  Transmission Date: 20071010
  Serious: No
  Sender: FDA-Public Use
  Company Number: 2007PV028523

PATIENT
  Age: 77 Year
  Sex: Female
  Weight: 68.0396 kg

DRUGS (6)
  1. BYETTA [Suspect]
     Indication: DIABETES MELLITUS NON-INSULIN-DEPENDENT
     Dosage: 5 MCG;BID;SC, 5 MCG;QD;SC
     Route: 058
     Dates: start: 20070104, end: 20070109
  2. BYETTA [Suspect]
     Indication: DIABETES MELLITUS NON-INSULIN-DEPENDENT
     Dosage: 5 MCG;BID;SC, 5 MCG;QD;SC
     Route: 058
     Dates: start: 20070110
  3. HUMALOG 75/25 INSULIN [Concomitant]
  4. METFORMIN HCL [Concomitant]
  5. HUMALOG MIX 75/25 [Concomitant]
  6. GLUCOPHAGE [Concomitant]

REACTIONS (6)
  - BLOOD GLUCOSE ABNORMAL [None]
  - DRUG INEFFECTIVE [None]
  - HYPOGLYCAEMIA [None]
  - LARYNGITIS VIRAL [None]
  - SINUSITIS [None]
  - STRESS [None]
